FAERS Safety Report 7802130-0 (Version None)
Quarter: 2011Q4

REPORT INFORMATION
  Report Type: 
  Country: None (occurrence: None)
  Receive Date: 20111007
  Receipt Date: 20111003
  Transmission Date: 20120403
  Serious: Yes (Other)
  Sender: FDA-Public Use
  Company Number: FR-PFIZER INC-2011150564

PATIENT
  Age: 71 Year
  Sex: Female
  Weight: 60 kg

DRUGS (8)
  1. ATORVASTATIN CALCIUM [Suspect]
     Indication: HYPERCHOLESTEROLAEMIA
     Dosage: 1 DF, 1X/DAY
     Dates: start: 19980101
  2. ZOLPIDEM [Concomitant]
     Indication: INSOMNIA
     Dosage: ONE DOSE, 1X/DAY
     Route: 048
     Dates: start: 20080101
  3. RABEPRAZOLE SODIUM [Concomitant]
     Indication: ABDOMINAL PAIN UPPER
     Dosage: UNK
     Route: 048
     Dates: start: 20110517, end: 20110607
  4. AMITRIPTYLINE HCL [Concomitant]
     Indication: DEPRESSION
     Dosage: 25 UNK, 1X/DAY
     Route: 048
     Dates: start: 20080101
  5. ATORVASTATIN CALCIUM [Interacting]
     Dosage: 10 UNK, UNK
  6. ATORVASTATIN CALCIUM [Interacting]
     Dosage: UNK
     Dates: start: 20090101, end: 20110625
  7. FUCIDINE CAP [Interacting]
     Indication: STAPHYLOCOCCAL SKIN INFECTION
     Dosage: 6 TABLETS, DAILY
     Dates: start: 20110101, end: 20110607
  8. RAMIPRIL [Concomitant]
     Indication: HYPERTENSION
     Dosage: 2.5 UNK, 1X/DAY
     Route: 048

REACTIONS (3)
  - BLOOD CREATINE PHOSPHOKINASE INCREASED [None]
  - RHABDOMYOLYSIS [None]
  - DRUG INTERACTION [None]
